FAERS Safety Report 7440709-9 (Version None)
Quarter: 2011Q2

REPORT INFORMATION
  Report Type: 
  Country: None (occurrence: None)
  Receive Date: 20110427
  Receipt Date: 20110414
  Transmission Date: 20111010
  Serious: Yes (Hospitalization)
  Sender: FDA-Public Use
  Company Number: US-JNJFOC-20110206437

PATIENT
  Sex: Female
  Weight: 75.8 kg

DRUGS (12)
  1. MESALAMINE [Concomitant]
     Route: 048
  2. ANTIBIOTICS [Concomitant]
     Indication: INFLAMMATORY BOWEL DISEASE
  3. FERROUS SULFATE TAB [Concomitant]
  4. POSTURE-D WHITEHALL [Concomitant]
  5. GOLYTELY NOS [Concomitant]
  6. BUDESONIDE [Concomitant]
  7. MESALAMINE [Concomitant]
     Route: 054
  8. HUMALOG [Concomitant]
  9. PROBIOTICS [Concomitant]
  10. INFLIXIMAB, RECOMBINANT [Suspect]
     Route: 042
  11. INFLIXIMAB, RECOMBINANT [Suspect]
     Indication: COLITIS
     Route: 042
  12. PREDNISONE [Concomitant]

REACTIONS (1)
  - INFLAMMATORY BOWEL DISEASE [None]
